FAERS Safety Report 8519265-X (Version None)
Quarter: 2012Q3

REPORT INFORMATION
  Report Type: 
  Country: None (occurrence: None)
  Receive Date: 20120718
  Receipt Date: 20120710
  Transmission Date: 20120928
  Serious: No
  Sender: FDA-Public Use
  Company Number: US-B.I. PHARMACEUTICALS,INC./RIDGEFIELD-2011-BP-20510BP

PATIENT
  Sex: Female
  Weight: 62.6 kg

DRUGS (1)
  1. TRADJENTA [Suspect]
     Indication: TYPE 2 DIABETES MELLITUS
     Dosage: 5 MG
     Route: 048
     Dates: start: 20110816, end: 20110818

REACTIONS (4)
  - BLOOD GLUCOSE ABNORMAL [None]
  - LIP SWELLING [None]
  - HYPERSENSITIVITY [None]
  - HYPOAESTHESIA ORAL [None]
